FAERS Safety Report 4659707-3 (Version None)
Quarter: 2005Q2

REPORT INFORMATION
  Report Type: 
  Country: None (occurrence: None)
  Receive Date: 20050420
  Receipt Date: 20050228
  Transmission Date: 20051028
  Serious: No
  Sender: FDA-Public Use
  Company Number: PHEH2005US02643

PATIENT
  Sex: Female

DRUGS (1)
  1. ENABLEX [Suspect]
     Indication: BLADDER SPASM
     Dosage: 7.5 MG,  QD,  ORAL
     Route: 048
     Dates: start: 20050201

REACTIONS (2)
  - CONSTIPATION [None]
  - DRY MOUTH [None]
